FAERS Safety Report 9548122 (Version 1)
Quarter: 2013Q2

REPORT INFORMATION
  Report Type: Spontaneous
  Country: US (occurrence: None)
  Receive Date: 20130606
  Receipt Date: 20130606
  Transmission Date: 20140414
  Serious: Yes (Hospitalization)
  Sender: FDA-Public Use
  Company Number: 2013PROUSA02612

PATIENT
  Age: 68 Year
  Sex: Male
  Weight: 82.3 kg

DRUGS (12)
  1. PROVENGE (SIPULEUCEL-T) SUSPENSION, 250ML [Suspect]
     Indication: PROSTATE CANCER METASTATIC
     Route: 042
     Dates: start: 20130118, end: 20130118
  2. INSULIN GLARGINE (INSULIN GLARGINE) [Concomitant]
  3. PRECOSE (ACARBOSE) [Concomitant]
  4. ZOFRAN (ONDANSETRON HYDROCHLORIDE) [Concomitant]
  5. PERI-COLACE (CASANTHRANOL, DOCUSATE SODIUM) [Concomitant]
  6. SIMVASTATIN (SIMVASTATIN) [Concomitant]
  7. CALCIUM CARBONATE (CALCIUM CARBONATE) [Concomitant]
  8. PRINIVIL (LISINOPRIL DIHYDRATE) [Concomitant]
  9. ENOXAPARIN SODIUM (ENOXAPARIN SODIUM) [Concomitant]
  10. ASPIRIN (ACETYLSALICYLIC ACID) [Concomitant]
  11. CAPHOSOL (CALCIUM CHLORIDE, SODIUM CHLORIDE, SODIUM PHOSPHATE DIBASIC, SODIUM PHOSPHATE MONOBASIC) [Concomitant]
  12. HEMORRHOID (HYDROCORTISONE ACETATE) [Concomitant]

REACTIONS (6)
  - Diarrhoea [None]
  - Dehydration [None]
  - Anxiety [None]
  - Nausea [None]
  - Vomiting [None]
  - Constipation [None]
